FAERS Safety Report 11850840 (Version 3)
Quarter: 2016Q1

REPORT INFORMATION
  Report Type: Report from Study
  Country: AU (occurrence: AU)
  Receive Date: 20151218
  Receipt Date: 20160310
  Transmission Date: 20160526
  Serious: Yes (Hospitalization)
  Sender: FDA-Public Use
  Company Number: AU-ABBVIE-15P-008-1519227-00

PATIENT
  Sex: Female

DRUGS (3)
  1. VIEKIRA PAK [Suspect]
     Active Substance: DASABUVIR\OMBITASVIR\PARITAPREVIR\RITONAVIR
     Indication: HEPATITIS C
  2. RIBAVIRIN. [Suspect]
     Active Substance: RIBAVIRIN
     Indication: CHILD-PUGH-TURCOTTE SCORE INCREASED
     Dosage: RIBAVIRIN: 400MG AM AND 600MG PM
     Route: 048
     Dates: start: 20151024
  3. VIEKIRA PAK [Suspect]
     Active Substance: DASABUVIR\OMBITASVIR\PARITAPREVIR\RITONAVIR
     Indication: CHILD-PUGH-TURCOTTE SCORE INCREASED
     Route: 048
     Dates: start: 20151024

REACTIONS (6)
  - Ascites [Recovering/Resolving]
  - Blood albumin increased [Recovering/Resolving]
  - Hypophagia [Recovering/Resolving]
  - Cachexia [Recovering/Resolving]
  - Jaundice [Recovering/Resolving]
  - Hepatic failure [Recovering/Resolving]
